APPROVED DRUG PRODUCT: ETOPOPHOS PRESERVATIVE FREE
Active Ingredient: ETOPOSIDE PHOSPHATE
Strength: EQ 1GM BASE/VIAL
Dosage Form/Route: INJECTABLE;INJECTION
Application: N020906 | Product #002
Applicant: BRISTOL MYERS SQUIBB
Approved: Feb 27, 1998 | RLD: No | RS: No | Type: DISCN